FAERS Safety Report 8923718 (Version 1)
Quarter: 2012Q4

REPORT INFORMATION
  Report Type: Spontaneous
  Country: IT (occurrence: None)
  Receive Date: 20121115
  Receipt Date: 20121115
  Transmission Date: 20130627
  Serious: Yes (Death, Hospitalization)
  Sender: FDA-Public Use
  Company Number: B0843451A

PATIENT
  Age: 81 Year
  Sex: Female

DRUGS (3)
  1. SALMETEROL XINAFOATE [Suspect]
     Indication: PRODUCTIVE COUGH
  2. ANTIBIOTICS [Concomitant]
     Indication: PRODUCTIVE COUGH
  3. CORTICOSTEROID [Concomitant]

REACTIONS (12)
  - Stress cardiomyopathy [None]
  - Bronchitis [None]
  - Disease recurrence [None]
  - Haemoptysis [None]
  - Palpitations [None]
  - Loss of consciousness [None]
  - Syncope [None]
  - Cardio-respiratory arrest [None]
  - Ventricular fibrillation [None]
  - Cardiac arrest [None]
  - Mitral valve incompetence [None]
  - Hypoxic-ischaemic encephalopathy [None]
